FAERS Safety Report 16322676 (Version 2)
Quarter: 2019Q2

REPORT INFORMATION
  Report Type: Report from Study
  Country: US (occurrence: US)
  Receive Date: 20190516
  Receipt Date: 20190603
  Transmission Date: 20190711
  Serious: No
  Sender: FDA-Public Use
  Company Number: PHEH2019US019896

PATIENT
  Sex: Male

DRUGS (2)
  1. TAFINLAR [Suspect]
     Active Substance: DABRAFENIB MESYLATE
     Indication: PRODUCT USED FOR UNKNOWN INDICATION
     Route: 048
  2. MEKINIST [Suspect]
     Active Substance: TRAMETINIB DIMETHYL SULFOXIDE
     Indication: PRODUCT USED FOR UNKNOWN INDICATION
     Route: 048

REACTIONS (12)
  - Weight decreased [Unknown]
  - Dizziness [Unknown]
  - Night sweats [Unknown]
  - Retching [Unknown]
  - Headache [Unknown]
  - Nausea [Unknown]
  - Chills [Unknown]
  - Dehydration [Unknown]
  - Decreased appetite [Unknown]
  - Paranasal sinus discomfort [Unknown]
  - Pyrexia [Unknown]
  - Fatigue [Unknown]
